FAERS Safety Report 5251814-X (Version None)
Quarter: 2007Q1

REPORT INFORMATION
  Report Type: 
  Country: None (occurrence: None)
  Receive Date: 20070228
  Receipt Date: 20070216
  Transmission Date: 20070707
  Serious: Yes (Other)
  Sender: FDA-Public Use
  Company Number: DE-PFIZER INC-2007012952

PATIENT
  Age: 51 Year
  Sex: Female

DRUGS (2)
  1. LITHIUM CARBONATE [Suspect]
     Indication: AFFECTIVE DISORDER
     Dosage: TEXT:UNKNOWN
  2. LEVOTHYROXINE SODIUM [Concomitant]
     Indication: GOITRE
     Dosage: DAILY DOSE:100MCG

REACTIONS (1)
  - NEPHROPATHY [None]
